FAERS Safety Report 18024654 (Version 1)
Quarter: 2020Q3

REPORT INFORMATION
  Report Type: Spontaneous
  Country: RS (occurrence: RS)
  Receive Date: 20200714
  Receipt Date: 20200714
  Transmission Date: 20201103
  Serious: Yes (Other)
  Sender: FDA-Public Use
  Company Number: RS-ROCHE-2636899

PATIENT
  Age: 57 Year
  Sex: Female

DRUGS (1)
  1. ZELBORAF [Suspect]
     Active Substance: VEMURAFENIB
     Indication: METASTATIC MALIGNANT MELANOMA
     Dosage: FOUR TABLETS IN THE MORNING AND FOUR TABLETS IN THE EVENING
     Route: 048
     Dates: start: 20180621, end: 20180814

REACTIONS (8)
  - Toxicity to various agents [Unknown]
  - Actinic keratosis [Unknown]
  - Squamous cell carcinoma [Unknown]
  - Keratoacanthoma [Unknown]
  - Dry skin [Unknown]
  - Pigmentation disorder [Unknown]
  - Skin papilloma [Unknown]
  - Basal cell carcinoma [Unknown]

NARRATIVE: CASE EVENT DATE: 201807
